FAERS Safety Report 6654000-1 (Version None)
Quarter: 2010Q1

REPORT INFORMATION
  Report Type: 
  Country: None (occurrence: None)
  Receive Date: 20100326
  Receipt Date: 20100322
  Transmission Date: 20100710
  Serious: Yes (Death, Hospitalization, Other)
  Sender: FDA-Public Use
  Company Number: IN-ELI_LILLY_AND_COMPANY-IN201003006225

PATIENT
  Age: 60 Year
  Sex: Male

DRUGS (3)
  1. XIGRIS [Suspect]
     Indication: SEPSIS
     Dosage: UNK, OTHER (96 HOUR THERAPY)
     Route: 042
     Dates: start: 20100312, end: 20100301
  2. MEROPENEM [Concomitant]
     Dosage: UNK, UNKNOWN
     Route: 065
  3. DORIPENEM [Concomitant]
     Dosage: UNK, UNKNOWN
     Route: 065
     Dates: start: 20100301

REACTIONS (4)
  - CARDIAC ARREST [None]
  - GENERAL PHYSICAL HEALTH DETERIORATION [None]
  - INFECTION [None]
  - SEPSIS [None]
